FAERS Safety Report 9007496 (Version 1)
Quarter: 2013Q1

REPORT INFORMATION
  Report Type: Spontaneous
  Country: SG (occurrence: SG)
  Receive Date: 20130111
  Receipt Date: 20130111
  Transmission Date: 20140127
  Serious: Yes (Other)
  Sender: FDA-Public Use
  Company Number: SG-009507513-1301SGP003501

PATIENT
  Age: 51 Year
  Sex: Female

DRUGS (1)
  1. FOSAMAX 70MG [Suspect]
     Dosage: UNK
     Route: 048
     Dates: start: 20121124, end: 20121125

REACTIONS (2)
  - Dermatitis exfoliative [Recovered/Resolved]
  - Face oedema [Recovered/Resolved]
